FAERS Safety Report 16087926 (Version 2)
Quarter: 2019Q1

REPORT INFORMATION
  Report Type: Spontaneous
  Country: BE (occurrence: BE)
  Receive Date: 20190319
  Receipt Date: 20190328
  Transmission Date: 20190418
  Serious: Yes (Death, Hospitalization, Other)
  Sender: FDA-Public Use
  Company Number: BE-009507513-1903BEL005932

PATIENT
  Age: 66 Year
  Sex: Male

DRUGS (6)
  1. PEMETREXED DISODIUM [Concomitant]
     Active Substance: PEMETREXED DISODIUM
     Indication: LUNG ADENOCARCINOMA
     Dosage: UNK
     Dates: start: 20181207, end: 2018
  2. PEMETREXED DISODIUM [Concomitant]
     Active Substance: PEMETREXED DISODIUM
     Indication: NON-SMALL CELL LUNG CANCER
  3. KEYTRUDA [Suspect]
     Active Substance: PEMBROLIZUMAB
     Indication: NON-SMALL CELL LUNG CANCER
  4. PLATINUM [Concomitant]
     Active Substance: PLATINUM
     Indication: NON-SMALL CELL LUNG CANCER
  5. KEYTRUDA [Suspect]
     Active Substance: PEMBROLIZUMAB
     Indication: LUNG ADENOCARCINOMA
     Dosage: UNK
     Dates: start: 20181207, end: 2018
  6. PLATINUM [Concomitant]
     Active Substance: PLATINUM
     Indication: LUNG ADENOCARCINOMA
     Dosage: UNK
     Dates: start: 20181207, end: 2018

REACTIONS (3)
  - Sudden death [Fatal]
  - Malignant neoplasm progression [Unknown]
  - Atrial flutter [Unknown]

NARRATIVE: CASE EVENT DATE: 201812
